FAERS Safety Report 13942545 (Version 1)
Quarter: 2017Q3

REPORT INFORMATION
  Report Type: Spontaneous
  Country: US (occurrence: US)
  Receive Date: 20170906
  Receipt Date: 20170906
  Transmission Date: 20171127
  Serious: Yes (Other)
  Sender: FDA-Public Use
  Company Number: US-BAYER-2017-168147

PATIENT
  Age: 31 Year
  Sex: Female

DRUGS (1)
  1. MIRENA [Suspect]
     Active Substance: LEVONORGESTREL
     Dosage: 20 MCG/24HR, CONT
     Route: 015
     Dates: start: 20141009, end: 20151026

REACTIONS (9)
  - Device issue [None]
  - Device difficult to use [None]
  - Peritonitis [None]
  - Gastrointestinal injury [None]
  - Complication of device removal [None]
  - Abdominal pain [None]
  - Pyrexia [None]
  - Genital haemorrhage [None]
  - Abdominal pain lower [Not Recovered/Not Resolved]

NARRATIVE: CASE EVENT DATE: 20151005
